FAERS Safety Report 4785707-9 (Version None)
Quarter: 2005Q3

REPORT INFORMATION
  Report Type: 
  Country: None (occurrence: None)
  Receive Date: 20050929
  Receipt Date: 20050919
  Transmission Date: 20060218
  Serious: Yes (Hospitalization)
  Sender: FDA-Public Use
  Company Number: 2005BI016713

PATIENT
  Sex: Female

DRUGS (1)
  1. AVONEX [Suspect]
     Indication: MULTIPLE SCLEROSIS
     Dosage: UNKNOWN;UNK;IM
     Route: 030

REACTIONS (3)
  - DIFFICULTY IN WALKING [None]
  - NERVE INJURY [None]
  - SURGICAL PROCEDURE REPEATED [None]
